FAERS Safety Report 15067195 (Version 2)
Quarter: 2018Q3

REPORT INFORMATION
  Report Type: Report from Study
  Country: ES (occurrence: ES)
  Receive Date: 20180626
  Receipt Date: 20180710
  Transmission Date: 20181010
  Serious: Yes (Death, Hospitalization)
  Sender: FDA-Public Use
  Company Number: ES-PFIZER INC-2018159665

PATIENT
  Age: 66 Year
  Sex: Male
  Weight: 70 kg

DRUGS (15)
  1. ABSTRAL [Concomitant]
     Active Substance: FENTANYL CITRATE
     Dosage: UNK
     Dates: start: 20180316
  2. ENANTYUM [Concomitant]
     Active Substance: DEXKETOPROFEN TROMETAMOL
     Dosage: UNK
     Dates: start: 20180329, end: 20180329
  3. IRINOTECAN HCL [Suspect]
     Active Substance: IRINOTECAN HYDROCHLORIDE
     Indication: SMALL CELL LUNG CANCER
     Dosage: 600 MG, TOTAL DAILY DOSE, CYCLE 1, FORMULATION WAS INTRAVENOUS INJECTION
     Route: 041
     Dates: start: 20180329, end: 20180329
  4. PRIMPERAN [Concomitant]
     Active Substance: METOCLOPRAMIDE HYDROCHLORIDE
     Dosage: UNK
     Dates: start: 20180329, end: 20180329
  5. AMERIDE /00206601/ [Concomitant]
     Active Substance: AMILORIDE HYDROCHLORIDE\HYDROCHLOROTHIAZIDE
     Dosage: UNK
     Dates: start: 20160229
  6. DUROGESIC [Concomitant]
     Active Substance: FENTANYL
     Dosage: UNK
     Dates: start: 20180316
  7. DINUTUXIMAB [Suspect]
     Active Substance: DINUTUXIMAB
     Indication: SMALL CELL LUNG CANCER
     Dosage: 28 MG, TOTAL DAILY DOSE, CYCLE 1,  FORMULATION WAS INTRAVENOUS INJECTION, MG/ML
     Route: 041
     Dates: start: 20180329, end: 20180329
  8. ATORVASTATINE /01326101/ [Concomitant]
     Active Substance: ATORVASTATIN
     Dosage: UNK
     Dates: start: 20160229
  9. DULOXETINE. [Concomitant]
     Active Substance: DULOXETINE
     Dosage: UNK
     Dates: start: 20171002
  10. OMEPRAZOLE. [Concomitant]
     Active Substance: OMEPRAZOLE
     Dosage: UNK
     Dates: start: 20180130
  11. MORPHINE [Concomitant]
     Active Substance: MORPHINE
     Dosage: UNK
     Dates: start: 20180329, end: 20180329
  12. ESIDREX [Concomitant]
     Active Substance: HYDROCHLOROTHIAZIDE
     Dosage: UNK
     Dates: start: 20180306
  13. SERC /00034201/ [Concomitant]
     Dosage: UNK
     Dates: start: 20161130
  14. ENANTYUM [Concomitant]
     Active Substance: DEXKETOPROFEN TROMETAMOL
     Dosage: UNK
     Dates: start: 20180321
  15. ADIRO [Concomitant]
     Active Substance: ASPIRIN
     Dosage: UNK
     Dates: start: 20160812

REACTIONS (2)
  - Neutropenia [Recovered/Resolved]
  - Endocarditis noninfective [Fatal]

NARRATIVE: CASE EVENT DATE: 20180405
